FAERS Safety Report 22818554 (Version 8)
Quarter: 2024Q2

REPORT INFORMATION
  Report Type: Report from Study
  Country: KR (occurrence: KR)
  Receive Date: 20230814
  Receipt Date: 20240624
  Transmission Date: 20240716
  Serious: Yes (Other)
  Sender: FDA-Public Use
  Company Number: KR-JNJFOC-20230827242

PATIENT
  Age: 46 Year
  Sex: Female
  Weight: 55 kg

DRUGS (17)
  1. SIMPONI [Suspect]
     Active Substance: GOLIMUMAB
     Indication: Colitis ulcerative
     Route: 058
     Dates: start: 20180531
  2. SIMPONI [Suspect]
     Active Substance: GOLIMUMAB
     Route: 058
     Dates: start: 20180628
  3. SIMPONI [Suspect]
     Active Substance: GOLIMUMAB
     Dosage: DATE OF MOST RECENT DOSE  30-JUN-2023
     Route: 058
     Dates: start: 20190110, end: 20230630
  4. WONDERCAL D [Concomitant]
     Indication: Vitamin B complex deficiency
     Dates: start: 20180517
  5. SYNTHROID [Concomitant]
     Active Substance: LEVOTHYROXINE SODIUM
     Indication: Hypothyroidism
     Dates: start: 20180517
  6. PROBIOTICS NOS [Concomitant]
     Active Substance: PROBIOTICS NOS
     Indication: Product used for unknown indication
     Dates: start: 20180628, end: 20180829
  7. PROBIOTICS NOS [Concomitant]
     Active Substance: PROBIOTICS NOS
     Dates: start: 20190404
  8. FERROUS SULFATE [Concomitant]
     Active Substance: FERROUS SULFATE
     Indication: Anaemia
     Dates: start: 20200423
  9. IRON [Concomitant]
     Active Substance: IRON
     Indication: Anaemia
     Dates: start: 20200423
  10. MESALAMINE [Concomitant]
     Active Substance: MESALAMINE
     Indication: Product used for unknown indication
     Dates: start: 20180517, end: 20190703
  11. MESALAMINE [Concomitant]
     Active Substance: MESALAMINE
     Dates: start: 20180517, end: 20180530
  12. MESALAMINE [Concomitant]
     Active Substance: MESALAMINE
     Dates: start: 20180517, end: 20180613
  13. ESCHERICHIA COLI [Concomitant]
     Active Substance: ESCHERICHIA COLI
     Indication: Product used for unknown indication
     Dates: start: 20180517, end: 20180627
  14. ISONIAZID [Concomitant]
     Active Substance: ISONIAZID
     Indication: Pulmonary tuberculosis
     Dates: start: 20180517, end: 20190124
  15. PYRIDOXINE [Concomitant]
     Active Substance: PYRIDOXINE
     Indication: Vitamin B complex deficiency
     Dates: start: 20180517, end: 20190124
  16. LOPMIN [Concomitant]
     Indication: Product used for unknown indication
     Dates: start: 20210329, end: 20210430
  17. ALVERIX [Concomitant]
     Indication: Product used for unknown indication
     Dosage: 60/300MG
     Dates: start: 20211208, end: 20220301

REACTIONS (1)
  - Breast cancer [Recovering/Resolving]

NARRATIVE: CASE EVENT DATE: 20230720
